FAERS Safety Report 18961628 (Version 2)
Quarter: 2021Q3

REPORT INFORMATION
  Report Type: Report from Study
  Country: BR (occurrence: BR)
  Receive Date: 20210303
  Receipt Date: 20210826
  Transmission Date: 20211014
  Serious: Yes (Other)
  Sender: FDA-Public Use
  Company Number: BR-BRISTOL-MYERS SQUIBB COMPANY-BMS-2021-007316

PATIENT
  Age: 49 Year
  Sex: Female

DRUGS (2)
  1. VELIJA [Concomitant]
     Active Substance: DULOXETINE HYDROCHLORIDE
     Indication: ANXIETY
     Dosage: 60 MILLIGRAM
     Route: 065
  2. ABATACEPT [Suspect]
     Active Substance: ABATACEPT
     Indication: RHEUMATOID ARTHRITIS
     Dosage: 3 VIALS OF 250 MG MONTHLY
     Route: 042
     Dates: start: 2019, end: 202101

REACTIONS (1)
  - Thyroid hormones increased [Recovered/Resolved]

NARRATIVE: CASE EVENT DATE: 20201216
